FAERS Safety Report 13324430 (Version 1)
Quarter: 2017Q1

REPORT INFORMATION
  Report Type: Spontaneous
  Country: US (occurrence: US)
  Receive Date: 20170308
  Receipt Date: 20170308
  Transmission Date: 20170428
  Serious: No
  Sender: FDA-Public Use
  Company Number: US-AMGEN-USASP2016178641

PATIENT
  Sex: Male

DRUGS (1)
  1. SENSIPAR [Suspect]
     Active Substance: CINACALCET HYDROCHLORIDE
     Indication: DIALYSIS
     Dosage: 30 MG, QD
     Route: 065

REACTIONS (2)
  - Gastrooesophageal reflux disease [Unknown]
  - Off label use [Unknown]
